FAERS Safety Report 5119493-X (Version None)
Quarter: 2006Q3

REPORT INFORMATION
  Report Type: 
  Country: None (occurrence: None)
  Receive Date: 20060929
  Receipt Date: 20060921
  Transmission Date: 20061208
  Serious: Yes (Death, Hospitalization)
  Sender: FDA-Public Use
  Company Number: 225507

PATIENT
  Age: 63 Year
  Sex: Female
  Weight: 67.1 kg

DRUGS (3)
  1. AVASTIN [Suspect]
     Indication: PANCREATIC CARCINOMA METASTATIC
     Dosage: 10 MG/KG, DAYS 1+15, INTRAVENOUS
     Route: 042
     Dates: start: 20050901
  2. GEMCITABINE [Suspect]
     Indication: PANCREATIC CARCINOMA METASTATIC
     Dosage: 1000 MG/M2, DAYS 1+15, INTRAVENOUS; 600 MG/M2
     Route: 042
     Dates: start: 20050901, end: 20060117
  3. OXALIPLATIN [Suspect]
     Indication: PANCREATIC CARCINOMA METASTATIC
     Dosage: 100 MG/M2, INTRAVENOUS
     Route: 042
     Dates: start: 20050901, end: 20060118

REACTIONS (4)
  - ABDOMINAL PAIN [None]
  - ASCITES [None]
  - DISEASE PROGRESSION [None]
  - PAIN [None]
